FAERS Safety Report 9842895 (Version 2)
Quarter: 2014Q2

REPORT INFORMATION
  Report Type: Spontaneous
  Country: US (occurrence: US)
  Receive Date: 20140124
  Receipt Date: 20140625
  Transmission Date: 20141212
  Serious: No
  Sender: FDA-Public Use
  Company Number: US-PFIZER INC-2014022482

PATIENT
  Age: 66 Year
  Sex: Female
  Weight: 52.2 kg

DRUGS (3)
  1. PREMARIN [Suspect]
     Indication: MENOPAUSAL SYMPTOMS
     Dosage: 1 G, 1X/DAY
     Route: 067
  2. VYTORIN [Concomitant]
     Indication: BLOOD CHOLESTEROL INCREASED
     Dosage: 0.5 DF (HALF TABLET OF 10/10MG), DAILY
  3. AMLODIPINE [Concomitant]
     Indication: VASCULAR STENOSIS
     Dosage: 5 MG, DAILY

REACTIONS (2)
  - Vaginal infection [Unknown]
  - Product quality issue [Unknown]
